FAERS Safety Report 8169610-2 (Version None)
Quarter: 2012Q1

REPORT INFORMATION
  Report Type: 
  Country: None (occurrence: None)
  Receive Date: 20120228
  Receipt Date: 20120220
  Transmission Date: 20120608
  Serious: Yes (Hospitalization, Other)
  Sender: FDA-Public Use
  Company Number: US-JNJFOC-20120210812

PATIENT
  Sex: Female
  Weight: 40.82 kg

DRUGS (1)
  1. INTELENCE [Suspect]
     Indication: HIV INFECTION
     Route: 048
     Dates: start: 20120101, end: 20120218

REACTIONS (3)
  - STEVENS-JOHNSON SYNDROME [None]
  - HOSPITALISATION [None]
  - HALLUCINATION [None]
